FAERS Safety Report 8565577-3 (Version None)
Quarter: 2012Q3

REPORT INFORMATION
  Report Type: 
  Country: None (occurrence: None)
  Receive Date: 20120724
  Receipt Date: 20120713
  Transmission Date: 20120928
  Serious: Yes (Hospitalization, Other)
  Sender: FDA-Public Use
  Company Number: ADR-2010-8632

PATIENT
  Age: 42 Year
  Sex: Male

DRUGS (1)
  1. BACLOFEN [Suspect]
     Indication: MUSCLE SPASTICITY
     Dosage: 500-550 MCG, DAILY,

REACTIONS (11)
  - DEVICE DAMAGE [None]
  - DEVICE BREAKAGE [None]
  - DRUG WITHDRAWAL SYNDROME [None]
  - GAIT SPASTIC [None]
  - DEVICE CONNECTION ISSUE [None]
  - DEVICE FAILURE [None]
  - MUSCLE SPASMS [None]
  - GENERAL PHYSICAL HEALTH DETERIORATION [None]
  - DYSTONIA [None]
  - MUSCLE SPASTICITY [None]
  - POSTOPERATIVE ADHESION [None]
